FAERS Safety Report 24545866 (Version 1)
Quarter: 2024Q4

REPORT INFORMATION
  Report Type: Spontaneous
  Country: CN (occurrence: CN)
  Receive Date: 20241024
  Receipt Date: 20241024
  Transmission Date: 20250115
  Serious: Yes (Other)
  Sender: GUERBET
  Company Number: CN-GUERBET / FUNDTRIP PHARMACEUTICALS-CN-20240274

PATIENT
  Age: 61 Year
  Sex: Male

DRUGS (1)
  1. LIPIODOL [Suspect]
     Active Substance: ETHIODIZED OIL
     Indication: Therapeutic embolisation
     Dosage: TISSUE GLUE AND LIPIODOL WERE MIXED WITH AT RATIO OF 1:2
     Route: 042

REACTIONS (3)
  - Cerebral artery embolism [Recovering/Resolving]
  - Cerebral infarction [Recovering/Resolving]
  - Product use in unapproved indication [Unknown]
